FAERS Safety Report 9336953 (Version 3)
Quarter: 2013Q3

REPORT INFORMATION
  Report Type: Spontaneous
  Country: IT (occurrence: IT)
  Receive Date: 20130607
  Receipt Date: 20130711
  Transmission Date: 20140515
  Serious: Yes (Hospitalization)
  Sender: FDA-Public Use
  Company Number: IT-BRISTOL-MYERS SQUIBB COMPANY-18981928

PATIENT
  Age: 75 Year
  Sex: Female

DRUGS (11)
  1. COUMADIN TABS 5 MG [Suspect]
     Indication: ATRIAL FIBRILLATION
     Dosage: INTERRUPTED ON 31MAY2013, REINTRODUCED ON 1JUN2013
     Route: 048
     Dates: start: 20090531
  2. CONTRAMAL [Interacting]
     Indication: BACK PAIN
     Route: 048
     Dates: start: 20130522, end: 20130531
  3. BISOPROLOL HEMIFUMARATE [Concomitant]
  4. LANSOPRAZOLE [Concomitant]
  5. EUTIROX [Concomitant]
     Dosage: 75 MCG TAB
     Route: 048
  6. PLAQUENIL [Concomitant]
     Dosage: TAB
  7. ALDACTONE [Concomitant]
     Dosage: TAB
  8. TRINIPLAS [Concomitant]
     Dosage: TRANSDERMAL PATCHES
     Route: 062
  9. DELTACORTENE [Concomitant]
     Dosage: TAB
  10. LASIX [Concomitant]
     Dosage: 25 MG TAB
     Route: 048
  11. ZYLORIC [Concomitant]
     Dosage: 300 MG TAB
     Route: 048

REACTIONS (2)
  - Hypocoagulable state [Recovered/Resolved]
  - Drug interaction [Unknown]
